FAERS Safety Report 25684600 (Version 2)
Quarter: 2025Q4

REPORT INFORMATION
  Report Type: Spontaneous
  Country: EU (occurrence: EU)
  Receive Date: 20250815
  Receipt Date: 20251001
  Transmission Date: 20260118
  Serious: Yes (Other)
  Sender: TEVA
  Company Number: EU-TEVA-VS-3361415

PATIENT
  Age: 53 Year
  Sex: Male

DRUGS (1)
  1. DARUNAVIR [Suspect]
     Active Substance: DARUNAVIR
     Indication: HIV infection
     Dosage: DOSE FORM:  FILM-COATED TABLETS
     Route: 065
     Dates: start: 20250627, end: 20250704

REACTIONS (5)
  - Product residue present [Recovered/Resolved]
  - Product supply issue [Unknown]
  - Malabsorption [Recovered/Resolved]
  - Treatment failure [Unknown]
  - Product substitution issue [Unknown]

NARRATIVE: CASE EVENT DATE: 20250101
